FAERS Safety Report 6040597-1 (Version None)
Quarter: 2009Q1

REPORT INFORMATION
  Report Type: 
  Country: None (occurrence: None)
  Receive Date: 20090116
  Receipt Date: 20080414
  Transmission Date: 20090719
  Serious: No
  Sender: FDA-Public Use
  Company Number: US-BRISTOL-MYERS SQUIBB COMPANY-14150346

PATIENT
  Age: 11 Year
  Sex: Male

DRUGS (3)
  1. ABILIFY [Suspect]
     Indication: ASPERGER'S DISORDER
     Route: 048
     Dates: start: 20040101, end: 20070101
  2. STRATTERA [Concomitant]
  3. TENEX [Concomitant]

REACTIONS (1)
  - TARDIVE DYSKINESIA [None]
